FAERS Safety Report 5244191-1 (Version None)
Quarter: 2007Q1

REPORT INFORMATION
  Report Type: 
  Country: None (occurrence: None)
  Receive Date: 20070222
  Receipt Date: 20070214
  Transmission Date: 20070707
  Serious: Yes (Death, Other)
  Sender: FDA-Public Use
  Company Number: GB-GLAXOSMITHKLINE-B0454328A

PATIENT
  Age: 28 Year
  Sex: Female

DRUGS (9)
  1. LITHIUM CARBONATE [Suspect]
     Indication: DEPRESSION
     Dosage: 900MG PER DAY
     Route: 048
  2. CITALOPRAM HYDROBROMIDE [Suspect]
     Indication: DEPRESSION
     Dosage: 30MG PER DAY
     Route: 048
  3. CLOZARIL [Suspect]
     Indication: SCHIZOPHRENIA
     Dosage: 400MG PER DAY
     Route: 048
     Dates: start: 20020301
  4. HALOPERIDOL [Suspect]
     Indication: DEPRESSION
     Dosage: 5MG TWICE PER DAY
     Route: 048
  5. DIAZEPAM [Concomitant]
     Indication: ANXIETY
     Dosage: 5MG THREE TIMES PER DAY
     Route: 048
  6. LACTULOSE [Concomitant]
  7. LEVOTHYROXINE SODIUM [Concomitant]
     Indication: HYPOTHYROIDISM
     Dosage: 50MCG FOUR TIMES PER DAY
     Route: 048
  8. PIRENZEPINE [Concomitant]
     Indication: SALIVARY HYPERSECRETION
     Dosage: 50MG THREE TIMES PER DAY
     Route: 048
  9. SENNA [Concomitant]

REACTIONS (4)
  - CYANOSIS [None]
  - MYOCARDIAL INFARCTION [None]
  - NEUTROPHIL COUNT INCREASED [None]
  - WHITE BLOOD CELL COUNT INCREASED [None]
